FAERS Safety Report 15065381 (Version 1)
Quarter: 2018Q2

REPORT INFORMATION
  Report Type: Report from Study
  Country: BR (occurrence: BR)
  Receive Date: 20180626
  Receipt Date: 20180626
  Transmission Date: 20180711
  Serious: Yes (Hospitalization)
  Sender: FDA-Public Use
  Company Number: BR-ROCHE-2128466

PATIENT
  Age: 36 Year
  Sex: Female
  Weight: 45 kg

DRUGS (9)
  1. MORPHINE [Concomitant]
     Active Substance: MORPHINE
     Indication: PAIN
     Route: 048
     Dates: start: 20170821
  2. NOMEGESTROL ACETATE [Concomitant]
     Active Substance: NOMEGESTROL ACETATE
     Indication: CONTRACEPTION
     Route: 048
     Dates: start: 201606
  3. ESTRADIOL. [Concomitant]
     Active Substance: ESTRADIOL
     Route: 048
     Dates: start: 201606
  4. PLACEBO [Suspect]
     Active Substance: UNSPECIFIED INGREDIENT
     Indication: MALIGNANT MELANOMA
     Route: 042
     Dates: start: 20180105
  5. GABAPENTIN. [Concomitant]
     Active Substance: GABAPENTIN
     Indication: PAIN
     Route: 048
     Dates: start: 20170821
  6. COBIMETINIB. [Suspect]
     Active Substance: COBIMETINIB
     Indication: MALIGNANT MELANOMA
     Dosage: DOSE OF LAST COBIMETINIB ADMINISTERED PRIOR TO SAE ONSET 60 MG (THREE, 20 MG TABLETS)
     Route: 048
     Dates: start: 20171209
  7. VEMURAFENIB. [Suspect]
     Active Substance: VEMURAFENIB
     Indication: MALIGNANT MELANOMA
     Route: 048
     Dates: start: 20171209
  8. OMEPRAZOL [Concomitant]
     Active Substance: OMEPRAZOLE
     Indication: DYSPEPSIA
     Route: 048
     Dates: start: 20070615
  9. AMITRIPTYLIN [Concomitant]
     Active Substance: AMITRIPTYLINE
     Indication: ANXIETY DISORDER
     Route: 048
     Dates: start: 20140615

REACTIONS (1)
  - Infectious colitis [Recovered/Resolved]

NARRATIVE: CASE EVENT DATE: 20180515
